FAERS Safety Report 15348699 (Version 3)
Quarter: 2018Q3

REPORT INFORMATION
  Report Type: Report from Study
  Country: KR (occurrence: KR)
  Receive Date: 20180904
  Receipt Date: 20180918
  Transmission Date: 20181010
  Serious: Yes (Hospitalization)
  Sender: FDA-Public Use
  Company Number: KR-JNJFOC-20180840124

PATIENT
  Age: 4 Decade
  Sex: Male
  Weight: 57 kg

DRUGS (1)
  1. REMICADE [Suspect]
     Active Substance: INFLIXIMAB
     Indication: ANKYLOSING SPONDYLITIS
     Dosage: 2011 OR FALL IN 2012
     Route: 042

REACTIONS (5)
  - Syncope [Recovered/Resolved]
  - Rash generalised [Recovered/Resolved]
  - Chills [Unknown]
  - Swelling face [Recovered/Resolved]
  - Incorrect drug administration rate [Unknown]
